FAERS Safety Report 11825057 (Version 1)
Quarter: 2015Q4

REPORT INFORMATION
  Report Type: Spontaneous
  Country: US (occurrence: None)
  Receive Date: 20151210
  Receipt Date: 20151210
  Transmission Date: 20160305
  Serious: No
  Sender: FDA-Public Use
  Company Number: None

PATIENT
  Age: 56 Year
  Sex: Male
  Weight: 92.53 kg

DRUGS (1)
  1. BYDUREON [Suspect]
     Active Substance: EXENATIDE
     Indication: TYPE 2 DIABETES MELLITUS
     Dosage: GIVEN INTO/IMDER THE SKIN
     Dates: start: 20151031, end: 20151209

REACTIONS (1)
  - Injection site mass [None]

NARRATIVE: CASE EVENT DATE: 20151012
